FAERS Safety Report 7934546-6 (Version None)
Quarter: 2011Q4

REPORT INFORMATION
  Report Type: 
  Country: None (occurrence: None)
  Receive Date: 20111122
  Receipt Date: 20111115
  Transmission Date: 20120403
  Serious: Yes (Hospitalization)
  Sender: FDA-Public Use
  Company Number: GB-TEVA-309562ISR

PATIENT
  Sex: Male

DRUGS (9)
  1. VALPROIC ACID [Suspect]
     Route: 048
  2. FLUPENTIXOL [Suspect]
     Dosage: 100MG/1ML
     Route: 030
  3. CANDESARTAN CILEXETIL [Concomitant]
     Route: 048
  4. METFORMIN HCL [Concomitant]
     Route: 048
  5. ADCAL-D3 [Concomitant]
     Route: 048
  6. OXYBUTYNIN [Concomitant]
     Route: 048
  7. PROCYCLIDINE HYDROCHLORIDE 2MG TAB [Concomitant]
     Route: 048
  8. FUROSEMIDE [Concomitant]
     Dosage: WITHDRAWN
  9. OMEPRAZOLE [Concomitant]
     Route: 048

REACTIONS (5)
  - URINARY TRACT INFECTION [None]
  - BLOOD OSMOLARITY DECREASED [None]
  - ACUTE MYOCARDIAL INFARCTION [None]
  - FALL [None]
  - URINE OSMOLARITY INCREASED [None]
